FAERS Safety Report 25365722 (Version 1)
Quarter: 2025Q2

REPORT INFORMATION
  Report Type: Spontaneous
  Country: US (occurrence: US)
  Receive Date: 20250527
  Receipt Date: 20250527
  Transmission Date: 20250716
  Serious: Yes (Hospitalization, Other)
  Sender: ALEXION PHARMACEUTICALS
  Company Number: US-AstraZeneca-CH-00877117A

PATIENT
  Age: 67 Year
  Weight: 73.481 kg

DRUGS (1)
  1. OLAPARIB [Suspect]
     Active Substance: OLAPARIB
     Indication: Mesothelioma
     Dosage: 125 MILLIGRAM, BID

REACTIONS (1)
  - Pneumonia [Recovered/Resolved]
